FAERS Safety Report 6718161-8 (Version None)
Quarter: 2010Q2

REPORT INFORMATION
  Report Type: 
  Country: None (occurrence: None)
  Receive Date: 20100510
  Receipt Date: 20100430
  Transmission Date: 20101027
  Serious: Yes (Other)
  Sender: FDA-Public Use
  Company Number: US-PFIZER INC-2010054851

PATIENT
  Sex: Female
  Weight: 77 kg

DRUGS (9)
  1. LIPITOR [Suspect]
     Indication: HYPERLIPIDAEMIA
     Dosage: 10 MG, 1X/DAY
     Route: 048
     Dates: start: 20100204, end: 20100331
  2. LIPITOR [Suspect]
     Indication: METABOLIC SYNDROME
  3. ACTOS [Suspect]
     Indication: TYPE 2 DIABETES MELLITUS
     Dosage: 15 MG, 1X/DAY
     Route: 048
     Dates: start: 20100204, end: 20100331
  4. GLYBURIDE [Concomitant]
     Indication: TYPE 2 DIABETES MELLITUS
     Dosage: 5 MG, 2X/DAY, WITH MEAL
     Route: 048
     Dates: start: 20081212
  5. LOTENSIN [Concomitant]
     Indication: TYPE 2 DIABETES MELLITUS
     Dosage: 10 MG, 1X/DAY
     Route: 048
     Dates: start: 20080408
  6. LOTENSIN [Concomitant]
     Indication: METABOLIC SYNDROME
  7. METHOTREXATE [Concomitant]
     Dosage: UNK
     Route: 065
  8. ACETYLSALICYLIC ACID [Concomitant]
     Indication: CARDIOVASCULAR EVENT PROPHYLAXIS
     Dosage: 81 MG, 1X/DAY
     Route: 065
  9. FOLIC ACID [Concomitant]
     Dosage: UNK

REACTIONS (6)
  - ABDOMINAL DISTENSION [None]
  - CHROMATURIA [None]
  - FLUID RETENTION [None]
  - OEDEMA PERIPHERAL [None]
  - PALPITATIONS [None]
  - WEIGHT INCREASED [None]
